FAERS Safety Report 9751406 (Version 1)
Quarter: 2013Q4

REPORT INFORMATION
  Report Type: Spontaneous
  Country: US (occurrence: US)
  Receive Date: 20131212
  Receipt Date: 20131212
  Transmission Date: 20140711
  Serious: No
  Sender: FDA-Public Use
  Company Number: US-BIOGENIDEC-2013BI097687

PATIENT
  Sex: Male

DRUGS (3)
  1. TECFIDERA [Suspect]
     Indication: MULTIPLE SCLEROSIS
     Route: 048
  2. FLUOXETINE HCL [Concomitant]
  3. A-Z MULTIVITAMIN [Concomitant]

REACTIONS (2)
  - Pharyngeal oedema [Unknown]
  - Abdominal discomfort [Unknown]
